FAERS Safety Report 13371975 (Version 1)
Quarter: 2017Q1

REPORT INFORMATION
  Report Type: Report from Study
  Country: NL (occurrence: NL)
  Receive Date: 20170326
  Receipt Date: 20170326
  Transmission Date: 20170429
  Serious: Yes (Hospitalization, Other)
  Sender: FDA-Public Use
  Company Number: NL-AMGEN-NLDSL2017043461

PATIENT
  Age: 73 Year
  Sex: Female

DRUGS (1)
  1. XGEVA [Suspect]
     Active Substance: DENOSUMAB
     Indication: PROPHYLAXIS
     Dosage: 120 MG, Q4WK (120 MG IN 1,70 ML)
     Route: 058

REACTIONS (2)
  - Hospitalisation [Unknown]
  - Lung cancer metastatic [Unknown]

NARRATIVE: CASE EVENT DATE: 20170307
